FAERS Safety Report 4740427-1 (Version None)
Quarter: 2005Q3

REPORT INFORMATION
  Report Type: 
  Country: None (occurrence: None)
  Receive Date: 20050810
  Receipt Date: 20041014
  Transmission Date: 20060218
  Serious: Yes (Hospitalization)
  Sender: FDA-Public Use
  Company Number: JP-BRISTOL-MYERS SQUIBB COMPANY-12731279

PATIENT
  Age: 73 Year
  Sex: Male
  Weight: 50 kg

DRUGS (7)
  1. PACLITAXEL [Suspect]
     Indication: NON-SMALL CELL LUNG CANCER
     Dosage: X 6/7 WEEKS
     Dates: start: 20040601
  2. SELBEX [Concomitant]
     Indication: PROPHYLAXIS
     Dosage: CAPSULE
     Route: 048
     Dates: start: 20040713, end: 20041010
  3. SEVEN E-P [Concomitant]
     Indication: ANOREXIA
     Route: 048
     Dates: start: 20040713, end: 20041023
  4. OMEPRAZOLE [Concomitant]
     Indication: GASTRITIS
     Route: 048
     Dates: start: 20041015, end: 20041023
  5. MAGNESIUM OXIDE [Concomitant]
     Indication: CONSTIPATION
     Dates: start: 20041013, end: 20041023
  6. CRAVIT [Concomitant]
     Indication: PROPHYLAXIS
     Route: 048
     Dates: start: 20040928, end: 20041023
  7. CRAVIT [Concomitant]
     Indication: ANOREXIA
     Route: 048
     Dates: start: 20040928, end: 20041023

REACTIONS (5)
  - ANOREXIA [None]
  - HERNIA [None]
  - ILEUS [None]
  - NAUSEA [None]
  - VOMITING [None]
